FAERS Safety Report 18762377 (Version 5)
Quarter: 2021Q1

REPORT INFORMATION
  Report Type: Spontaneous
  Country: US (occurrence: US)
  Receive Date: 20210120
  Receipt Date: 20210331
  Transmission Date: 20210419
  Serious: Yes (Other)
  Sender: FDA-Public Use
  Company Number: US-GLAXOSMITHKLINE-US2021AMR007477

PATIENT
  Sex: Female

DRUGS (7)
  1. OXYCODONE [Concomitant]
     Active Substance: OXYCODONE
     Indication: PRODUCT USED FOR UNKNOWN INDICATION
     Dosage: UNK
  2. OXYCODONE HYDROCHLORIDE. [Concomitant]
     Active Substance: OXYCODONE HYDROCHLORIDE
     Indication: PRODUCT USED FOR UNKNOWN INDICATION
     Dosage: UNK
  3. LORAZEPAM. [Concomitant]
     Active Substance: LORAZEPAM
     Indication: PRODUCT USED FOR UNKNOWN INDICATION
     Dosage: UNK
  4. DIAZEPAM. [Concomitant]
     Active Substance: DIAZEPAM
     Indication: PRODUCT USED FOR UNKNOWN INDICATION
     Dosage: UNK
  5. ZARXIO [Concomitant]
     Active Substance: FILGRASTIM-SNDZ
     Indication: PRODUCT USED FOR UNKNOWN INDICATION
     Dosage: UNK
  6. ONDANSETRON HYDROCHLORIDE. [Concomitant]
     Active Substance: ONDANSETRON HYDROCHLORIDE
     Indication: PRODUCT USED FOR UNKNOWN INDICATION
     Dosage: UNK
  7. ZEJULA [Suspect]
     Active Substance: NIRAPARIB
     Indication: OVARIAN CANCER
     Dosage: 200 MG, QD
     Dates: start: 20201230

REACTIONS (18)
  - Vomiting [Recovering/Resolving]
  - Diarrhoea [Unknown]
  - Anxiety [Unknown]
  - Constipation [Recovered/Resolved]
  - Neutropenia [Unknown]
  - Abdominal pain [Unknown]
  - Eating disorder [Unknown]
  - Back pain [Unknown]
  - Hepatic enzyme increased [Unknown]
  - Nausea [Unknown]
  - Fatigue [Unknown]
  - Dehydration [Not Recovered/Not Resolved]
  - Sleep terror [Unknown]
  - Flatulence [Unknown]
  - Pain [Unknown]
  - Blood test abnormal [Recovered/Resolved]
  - Insomnia [Unknown]
  - Thinking abnormal [Unknown]
